FAERS Safety Report 18882840 (Version 1)
Quarter: 2021Q1

REPORT INFORMATION
  Report Type: Spontaneous
  Country: IN (occurrence: IN)
  Receive Date: 20210212
  Receipt Date: 20210212
  Transmission Date: 20210420
  Serious: Yes (Hospitalization, Other)
  Sender: FDA-Public Use
  Company Number: IN-LUPIN PHARMACEUTICALS INC.-2021-01532

PATIENT
  Age: 30 Year
  Sex: Female

DRUGS (6)
  1. MEFENAMIC ACID. [Suspect]
     Active Substance: MEFENAMIC ACID
     Indication: DYSMENORRHOEA
     Dosage: UNK, INITIAL DOSAGE NOT STATED
     Route: 065
     Dates: start: 2007
  2. DICYCLOMINE [Suspect]
     Active Substance: DICYCLOMINE HYDROCHLORIDE
     Dosage: UNK, FROM 2014, SHE HAD STARTED TAKING 2?3 TABLETS OF DICYCLOVERINE DAILY TO GET RELIEF FROM STRESS
     Route: 065
     Dates: start: 2014
  3. DICYCLOMINE [Suspect]
     Active Substance: DICYCLOMINE HYDROCHLORIDE
     Indication: DYSMENORRHOEA
     Dosage: INITIAL DOSAGE NOT STATED
     Route: 065
     Dates: start: 2007
  4. MEFENAMIC ACID. [Suspect]
     Active Substance: MEFENAMIC ACID
     Dosage: INCREASED TO 10?15 TABLETS DAILY IN 2018
     Route: 065
     Dates: start: 2018
  5. DICYCLOMINE [Suspect]
     Active Substance: DICYCLOMINE HYDROCHLORIDE
     Dosage: UNK, UNK, INCREASED TO 10?15 TABLETS DAILY IN 2018 TO GET RELIEF FROM STRESS OF MARITAL DISCORD
     Route: 065
     Dates: start: 2018
  6. MEFENAMIC ACID. [Suspect]
     Active Substance: MEFENAMIC ACID
     Dosage: FROM 2014, SHE HAD STARTED TAKING 2?3 TABLETS OF MEFENAMIC ACID DAILY TO GET RELIEF FROM STRESS OF M
     Route: 065
     Dates: start: 2014

REACTIONS (13)
  - Anxiety [Recovered/Resolved]
  - Intentional product misuse [Unknown]
  - Intentional overdose [Unknown]
  - Restlessness [Recovered/Resolved]
  - Drug abuse [Unknown]
  - Hyperhidrosis [Recovered/Resolved]
  - Adjustment disorder [Recovered/Resolved]
  - Headache [Recovered/Resolved]
  - Drug tolerance [Unknown]
  - Tachycardia [Recovered/Resolved]
  - Palpitations [Recovered/Resolved]
  - Drug dependence [Unknown]
  - Drug withdrawal syndrome [Unknown]

NARRATIVE: CASE EVENT DATE: 2014
